FAERS Safety Report 7951840-3 (Version None)
Quarter: 2011Q4

REPORT INFORMATION
  Report Type: 
  Country: None (occurrence: None)
  Receive Date: 20111201
  Receipt Date: 20111117
  Transmission Date: 20120403
  Serious: Yes (Hospitalization)
  Sender: FDA-Public Use
  Company Number: FR-ROCHE-1015487

PATIENT
  Age: 54 Year
  Sex: Male

DRUGS (6)
  1. ALIMTA [Suspect]
     Indication: BRONCHIAL CARCINOMA
     Route: 042
     Dates: start: 20110920, end: 20110920
  2. SPECIAFOLDINE [Concomitant]
     Route: 048
     Dates: start: 20110925, end: 20110928
  3. AVASTIN [Suspect]
     Indication: BRONCHIAL CARCINOMA
     Route: 042
     Dates: start: 20110920, end: 20110920
  4. ACETAMINOPHEN [Concomitant]
     Route: 042
     Dates: start: 20110927
  5. METOCLOPRAMIDE [Concomitant]
     Route: 042
     Dates: start: 20110925, end: 20110928
  6. PLAVIX [Suspect]
     Indication: BRONCHIAL CARCINOMA
     Route: 048
     Dates: start: 20110925

REACTIONS (3)
  - MUCOSAL INFLAMMATION [None]
  - PANCYTOPENIA [None]
  - PYREXIA [None]
